FAERS Safety Report 16876144 (Version 2)
Quarter: 2019Q4

REPORT INFORMATION
  Report Type: Spontaneous
  Country: US (occurrence: US)
  Receive Date: 20191002
  Receipt Date: 20191024
  Transmission Date: 20200122
  Serious: Yes (Hospitalization)
  Sender: FDA-Public Use
  Company Number: US-GW PHARMA-201908USGW3125

PATIENT

DRUGS (34)
  1. ADCAL [CALCIUM CARBONATE;COLECALCIFEROL] [Concomitant]
     Indication: PRODUCT USED FOR UNKNOWN INDICATION
     Dosage: 1 TABLET BY GASTRIC TUBE ROUTE ONCE A DAY
  2. ALBUTEROL HFA [Concomitant]
     Active Substance: ALBUTEROL SULFATE
     Indication: COUGH
  3. CVS SALINE NASAL SPRAY [Concomitant]
     Active Substance: SODIUM CHLORIDE
     Indication: NASAL CONGESTION
     Dosage: 2 ACTUATION, Q4H (2 SPRAYS IN EACH NOSTRIL EVERY 4 HOURS)
     Route: 045
  4. ZYRTEC [Concomitant]
     Active Substance: CETIRIZINE HYDROCHLORIDE
     Indication: PRODUCT USED FOR UNKNOWN INDICATION
     Dosage: 10 MILLIGRAM, QD
     Route: 048
  5. IPRATROPIUM [Concomitant]
     Active Substance: IPRATROPIUM
     Indication: RHINORRHOEA
     Dosage: 2 ACTUATION, QID (SPRAY 2 SPRAYS IN BOTH NOSTRILS 4 TIMES DAILY) AS NEEDED
     Route: 045
  6. MULTIVITAMINS [ASCORBIC ACID;ERGOCALCIFEROL;FOLIC ACID;NICOTINAMIDE;PA [Concomitant]
     Active Substance: VITAMINS
     Indication: PRODUCT USED FOR UNKNOWN INDICATION
     Dosage: 6 GRAM, QD
     Route: 048
  7. CLOBAZAM. [Concomitant]
     Active Substance: CLOBAZAM
     Indication: PRODUCT USED FOR UNKNOWN INDICATION
     Dosage: 20 MILLIGRAM, QD (ONE HALF TABLET(5MG)IN AM, ONE TABLET (10MG) AT 2 PM AND ONE HALF TABLET (5MG) IN
     Route: 048
  8. CLOBAZAM. [Concomitant]
     Active Substance: CLOBAZAM
     Dosage: 10 MILLIGRAM, BID (PLACE ONE TABLET (10 MG TOTAL) IN GASTROSTOMY TUBE 2 TIMES DAILY. 2PM AND 8PM
  9. MIRALAX [Concomitant]
     Active Substance: POLYETHYLENE GLYCOL 3350
     Dosage: 4.25 G, BID (TAKE 1/2 CAPSULE TWICE DAILY VIA G-TUBE) CAN INCREASE TO 17G (ONE CAPFUL) IF NO STOOL A
  10. ACETAMINOPHEN. [Concomitant]
     Active Substance: ACETAMINOPHEN
     Indication: PYREXIA
     Dosage: 487.7 MILLIGRAM, Q6H (ONE AND HALF TABLET(S) (487.5) EVERY 6 HOURS. MUST DISPENSE TABLET.
     Route: 048
  11. ASMANEX HFA [Concomitant]
     Active Substance: MOMETASONE FUROATE
     Indication: PRODUCT USED FOR UNKNOWN INDICATION
     Dosage: 1 ACTUATION, BID
  12. DIAZEPAM. [Concomitant]
     Active Substance: DIAZEPAM
     Indication: SEIZURE
     Dosage: 15 MG RECTALLY
     Route: 054
  13. SOLU-CORTEF [Concomitant]
     Active Substance: HYDROCORTISONE SODIUM SUCCINATE
     Indication: STRESS
  14. ALBUTEROL HFA [Concomitant]
     Active Substance: ALBUTEROL SULFATE
     Indication: WHEEZING
     Dosage: 2 ACTUATION, Q4H(INHALE 2 PUFFS BY MOUTH EVERY 4 HOURS)
  15. KETOCAL 4:1 [Concomitant]
     Indication: PRODUCT USED FOR UNKNOWN INDICATION
     Dosage: 685 ML, QD (TO BE GIVEN AS DIRECTED WITH WATER)
  16. MICROLIPID [Concomitant]
     Indication: PRODUCT USED FOR UNKNOWN INDICATION
     Dosage: 44.35 GRAM, QD
  17. DIVALPROEX SODIUM. [Concomitant]
     Active Substance: DIVALPROEX SODIUM
     Indication: PRODUCT USED FOR UNKNOWN INDICATION
     Dosage: 250 MILLIGRAM, TID (DELAYED RELEASE TABLET)
  18. CLONAZEPAM. [Concomitant]
     Active Substance: CLONAZEPAM
     Indication: SEIZURE CLUSTER
     Dosage: 1 MG, PRN (TAKE 1 TABLET VIA G- TUBE AS NEEDED)
  19. MIRALAX [Concomitant]
     Active Substance: POLYETHYLENE GLYCOL 3350
     Indication: CONSTIPATION
     Dosage: 8.5 G, BID (PLACE ONE HALF CAPSULE (8.5 G TOTAL) IN GASTROSTOMY TUBE TWO TIMES DAILY.
  20. CUVPOSA [GLYCOPYRRONIUM BROMIDE] [Concomitant]
     Indication: PRODUCT USED FOR UNKNOWN INDICATION
     Dosage: 5 MILLILITER, Q6H (GIVE 5ML(1MG) 3-4 TIMES PER DAY, APPROXIMATELY EVERY 6H
     Route: 048
  21. FLUTICASONE FUROATE [Concomitant]
     Active Substance: FLUTICASONE FUROATE
     Indication: NASAL CONGESTION
     Dosage: 2 ACTUATION, BID (SPRAY 2 SPRAY(S) IN BOTH NOSTRILS 2 TIMES DAILY AS NEEDED FOR NASAL CONGESTION TOC
     Route: 045
  22. CLOBAZAM. [Concomitant]
     Active Substance: CLOBAZAM
     Dosage: 25 MILLIGRAM, QD (PLACE ONE HALF TABLET (5MG TOTAL) IN GASTROSTOMY TUBE BREAKFAST AND 1 TABLET(10MG
  23. MCT OIL [MEDIUM-CHAIN TRIGLYCERIDES] [Concomitant]
     Indication: PRODUCT USED FOR UNKNOWN INDICATION
     Dosage: 6.4 MILLILITER, BID (TOTAL 6G. MCT OIL BY NESTLE)
  24. HYDROCORTISONE. [Concomitant]
     Active Substance: HYDROCORTISONE
     Indication: PRODUCT USED FOR UNKNOWN INDICATION
     Dosage: 15 MG, Q8H (3 TABLETS IN GASTROSTOMY TUBE EVERY 8 HOURS AS NEEDED) (MODERATE STRESS DOSE)
  25. METAMUCIL [Concomitant]
     Active Substance: PLANTAGO SEED
     Indication: PRODUCT USED FOR UNKNOWN INDICATION
     Dosage: 0.52 GRAM, TID (1 CAPSULE VIA G TUBE THREE TIMES DAILY (CAN OPEN CAPSULE AND MIX WITH FORMULA OR WAT
  26. AZELASTINE HCL [Concomitant]
     Active Substance: AZELASTINE HYDROCHLORIDE
     Indication: PRODUCT USED FOR UNKNOWN INDICATION
     Dosage: 1 ACTUATION, BID (1 SPRAY(S) IN NOSE 2 TIMES DAILY
     Route: 045
  27. ALBUTEROL [SALBUTAMOL SULFATE] [Concomitant]
     Active Substance: ALBUTEROL SULFATE
     Indication: PRODUCT USED FOR UNKNOWN INDICATION
     Dosage: EVERY 4 HOURS AS NEEDED
  28. MELATONIN [Concomitant]
     Active Substance: MELATONIN
     Indication: PRODUCT USED FOR UNKNOWN INDICATION
     Dosage: 1 DOSAGE FORM, QD
  29. SOLU-CORTEF [Concomitant]
     Active Substance: HYDROCORTISONE SODIUM SUCCINATE
     Indication: VOMITING
     Dosage: 100 MILLIGRAM, PRN
     Route: 030
  30. ACETAMINOPHEN. [Concomitant]
     Active Substance: ACETAMINOPHEN
     Indication: PAIN
  31. KETOTIFEN FUMARATE. [Concomitant]
     Active Substance: KETOTIFEN FUMARATE
     Indication: EYE ALLERGY
     Dosage: 1 DROP, BID
     Route: 047
  32. FISH OIL [Concomitant]
     Active Substance: FISH OIL
     Indication: PRODUCT USED FOR UNKNOWN INDICATION
     Dosage: 8 MILLILITER, QD
  33. EPIDIOLEX [Suspect]
     Active Substance: CANNABIDIOL
     Indication: LENNOX-GASTAUT SYNDROME
     Dosage: 9.40 MG/KG, 150 MILLIGRAM, BID
     Route: 048
     Dates: start: 20190810
  34. CLINDAMYCIN. [Concomitant]
     Active Substance: CLINDAMYCIN
     Indication: PRODUCT USED FOR UNKNOWN INDICATION
     Dosage: 300 MG, TID (ONE CAPSULE (300 MG TOTAL IN GASTROSTOMY TUBE, CAN OPEN CAPSULE AND DISSOLVE IN WATER )

REACTIONS (6)
  - Hypotension [Unknown]
  - Peripheral coldness [Unknown]
  - Somnolence [Unknown]
  - Asthenia [Unknown]
  - Fatigue [Unknown]
  - Lethargy [Unknown]

NARRATIVE: CASE EVENT DATE: 20190819
